FAERS Safety Report 16844569 (Version 2)
Quarter: 2019Q4

REPORT INFORMATION
  Report Type: Spontaneous
  Country: JP (occurrence: JP)
  Receive Date: 20190924
  Receipt Date: 20191114
  Transmission Date: 20200122
  Serious: Yes (Other)
  Sender: FDA-Public Use
  Company Number: JP-PFIZER INC-2019394280

PATIENT
  Age: 14 Year
  Sex: Female

DRUGS (2)
  1. ATARAX-P [Suspect]
     Active Substance: HYDROXYZINE HYDROCHLORIDE
     Dosage: UNK
  2. OXATOMIDE [Suspect]
     Active Substance: OXATOMIDE
     Dosage: UNK

REACTIONS (2)
  - Drug-induced liver injury [Unknown]
  - Drug hypersensitivity [Unknown]
